FAERS Safety Report 21733675 (Version 1)
Quarter: 2022Q4

REPORT INFORMATION
  Report Type: Spontaneous
  Country: US (occurrence: None)
  Receive Date: 20221215
  Receipt Date: 20221215
  Transmission Date: 20230113
  Serious: Yes (Other)
  Sender: FDA-Public Use
  Company Number: None

PATIENT
  Age: 86 Year
  Sex: Female
  Weight: 69.75 kg

DRUGS (13)
  1. DOXYCYCLINE [Suspect]
     Active Substance: DOXYCYCLINE
     Indication: Pneumonia
     Dosage: OTHER QUANTITY : 1 CAPSULE(S);?FREQUENCY : TWICE A DAY;?
     Route: 048
  2. ISOVUE 370 [Suspect]
     Active Substance: IOPAMIDOL
     Indication: Pulmonary pain
     Dosage: OTHER QUANTITY : 1 CAPSULE(S);?FREQUENCY : DAILY;?
     Route: 048
     Dates: start: 20221206, end: 20221206
  3. CARVEDILOL [Concomitant]
     Active Substance: CARVEDILOL
  4. SUCRALFATE [Concomitant]
     Active Substance: SUCRALFATE
  5. VITAMIN D3 [Concomitant]
     Active Substance: CHOLECALCIFEROL
  6. VITAMIN B12 [Concomitant]
     Active Substance: CYANOCOBALAMIN
  7. LORATADINE [Concomitant]
     Active Substance: LORATADINE
  8. Methyl-Guard Plus PO [Concomitant]
  9. trace Minerals cr-cu-mn-se-zn-iv [Concomitant]
  10. Primal Force Ultra Accel II [Concomitant]
  11. Wildcaught Antarctic fish oil [Concomitant]
  12. Querdesin with Bromelain [Concomitant]
  13. Cardio Advanced (advanced phytosterols) [Concomitant]

REACTIONS (4)
  - Blister [None]
  - Erythema [None]
  - Swelling [None]
  - Dizziness [None]

NARRATIVE: CASE EVENT DATE: 20221207
